FAERS Safety Report 9221613 (Version 1)
Quarter: 2013Q1

REPORT INFORMATION
  Report Type: Spontaneous
  Country: US (occurrence: None)
  Receive Date: 20120831
  Receipt Date: 20120831
  Transmission Date: 20140127
  Serious: No
  Sender: FDA-Public Use
  Company Number: 1000036639

PATIENT
  Age: 81 Year
  Sex: Female

DRUGS (12)
  1. DALIRESP [Suspect]
     Indication: CHRONIC OBSTRUCTIVE PULMONARY DISEASE
     Route: 048
     Dates: start: 2012
  2. NASONEX (MOMETASONE FUROATE) [Concomitant]
  3. ALBUTEROL(ALBUTEROL)(ALBUTEROL) [Concomitant]
  4. SINGULAIR [Concomitant]
  5. XYZAL (LEVOCETIRIZINE DIHYDROCHLORIDE)(LEVOCETIRIZINE DIHYDROCHLORIDE) [Concomitant]
  6. COUMADIN(WARFARIN)(WARFARIN) [Concomitant]
  7. SPIRONOLACTAONE(SPIRONOLACTONE)(SPIRONOLACTONE) [Concomitant]
  8. VALIUM(DIAZEPAM)(DIAZEPAM) [Concomitant]
  9. XANAX (ALPRAZOLAM) (ALPRAZOLAM) [Concomitant]
  10. VESICARE(SOLIFENACIN SUCCINATE)(SOLFIENACIN SUCCINATE) [Concomitant]
  11. SYNTHROID(LEVOTHYROXINE SODIUM)( LEVOTHYROXINE SODIUM) [Concomitant]
  12. ZETIA(EZETIMEBE)(EZETIMIBE) [Concomitant]

REACTIONS (3)
  - Panic attack [None]
  - Weight decreased [None]
  - Insomnia [None]
